FAERS Safety Report 5525945-0 (Version None)
Quarter: 2007Q4

REPORT INFORMATION
  Report Type: 
  Country: None (occurrence: None)
  Receive Date: 20071126
  Receipt Date: 20071115
  Transmission Date: 20080405
  Serious: Yes (Other)
  Sender: FDA-Public Use
  Company Number: FR-PFIZER INC-2007096908

PATIENT
  Age: 70 Year
  Sex: Female

DRUGS (3)
  1. LYRICA [Suspect]
     Indication: NEURALGIA
  2. MIRTAZAPINE [Concomitant]
  3. LITHIUM CARBONATE [Concomitant]

REACTIONS (2)
  - DRUG INEFFECTIVE [None]
  - RESTLESS LEGS SYNDROME [None]
